FAERS Safety Report 11281300 (Version 1)
Quarter: 2015Q3

REPORT INFORMATION
  Report Type: Spontaneous
  Country: US (occurrence: US)
  Receive Date: 20150717
  Receipt Date: 20150717
  Transmission Date: 20151125
  Serious: No
  Sender: FDA-Public Use
  Company Number: PHEH2015US013860

PATIENT
  Age: 25 Year
  Sex: Male

DRUGS (1)
  1. GILENYA [Suspect]
     Active Substance: FINGOLIMOD HYDROCHLORIDE
     Indication: MULTIPLE SCLEROSIS
     Dosage: 0.5 MG, QD
     Route: 048
     Dates: start: 20130312, end: 20150515

REACTIONS (4)
  - Dizziness [Unknown]
  - Malaise [Unknown]
  - Multiple sclerosis relapse [Unknown]
  - Sensory loss [Unknown]

NARRATIVE: CASE EVENT DATE: 20150515
